FAERS Safety Report 9878825 (Version 1)
Quarter: 2014Q1

REPORT INFORMATION
  Report Type: Spontaneous
  Country: KW (occurrence: KW)
  Receive Date: 20140206
  Receipt Date: 20140206
  Transmission Date: 20141002
  Serious: Yes (Hospitalization, Other)
  Sender: FDA-Public Use
  Company Number: KW-GLAXOSMITHKLINE-B0966493A

PATIENT
  Age: 35 Year
  Sex: Female

DRUGS (1)
  1. REVOLADE [Suspect]
     Indication: IMMUNE THROMBOCYTOPENIC PURPURA
     Dosage: 75MG PER DAY
     Route: 065
     Dates: start: 20140120, end: 20140127

REACTIONS (1)
  - Pancytopenia [Recovered/Resolved]
